FAERS Safety Report 5123687-7 (Version None)
Quarter: 2006Q4

REPORT INFORMATION
  Report Type: 
  Country: None (occurrence: None)
  Receive Date: 20061010
  Receipt Date: 20060814
  Transmission Date: 20070319
  Serious: Yes (Other)
  Sender: FDA-Public Use
  Company Number: 2006UW16179

PATIENT
  Age: 19 Year
  Sex: Male

DRUGS (2)
  1. RHINOCORT AQUA [Suspect]
     Route: 045
  2. ALLEGRA-D 12 HOUR [Concomitant]

REACTIONS (1)
  - SKIN LACERATION [None]
